FAERS Safety Report 8796048 (Version 3)
Quarter: 2012Q4

REPORT INFORMATION
  Report Type: 
  Country: US (occurrence: US)
  Receive Date: 20120920
  Receipt Date: 20121119
  Transmission Date: 20130627
  Serious: Yes (Other)
  Sender: FDA-Public Use
  Company Number: US-BAYER-2012-095434

PATIENT
  Age: 53 Year
  Sex: Female
  Weight: 73.92 kg

DRUGS (1)
  1. MIRENA [Suspect]
     Indication: CONTRACEPTION
     Dosage: 20 mcg/24hr, CONT
     Route: 015
     Dates: start: 20110524, end: 20120118

REACTIONS (3)
  - Genital haemorrhage [Recovered/Resolved]
  - Pelvic pain [Recovered/Resolved]
  - Medical device discomfort [Recovered/Resolved]
